FAERS Safety Report 11236616 (Version 1)
Quarter: 2015Q3

REPORT INFORMATION
  Report Type: Spontaneous
  Country: US (occurrence: US)
  Receive Date: 20150702
  Receipt Date: 20150702
  Transmission Date: 20151125
  Serious: Yes (Hospitalization)
  Sender: FDA-Public Use
  Company Number: US-TAKEDA-2015TUS006377

PATIENT
  Sex: Female
  Weight: 103.4 kg

DRUGS (2)
  1. METHADONE [Interacting]
     Active Substance: METHADONE HYDROCHLORIDE
  2. CONTRAVE [Suspect]
     Active Substance: BUPROPION HYDROCHLORIDE\NALTREXONE HYDROCHLORIDE
     Indication: OBESITY
     Dosage: WEEK ONE: ONE TABLET DAILY IN MORNING
     Route: 048
     Dates: start: 20150506, end: 20150506

REACTIONS (2)
  - Drug withdrawal syndrome [Recovering/Resolving]
  - Contraindicated drug administered [Recovered/Resolved]
